FAERS Safety Report 18913046 (Version 1)
Quarter: 2021Q1

REPORT INFORMATION
  Report Type: Spontaneous
  Country: DK (occurrence: DK)
  Receive Date: 20210219
  Receipt Date: 20210219
  Transmission Date: 20210420
  Serious: Yes (Death, Other)
  Sender: FDA-Public Use
  Company Number: DK-AMGEN-DNKSP2021025570

PATIENT

DRUGS (4)
  1. PANITUMUMAB [Suspect]
     Active Substance: PANITUMUMAB
     Indication: CHOLANGIOCARCINOMA
     Dosage: 6 MILLIGRAM, Q2WK (28 DAY CYCLE)
     Route: 065
  2. CAPECITABINE. [Concomitant]
     Active Substance: CAPECITABINE
     Indication: CHOLANGIOCARCINOMA
     Dosage: 1000 MILLIGRAM/SQ. METER, Q2WK (28 DAY CYCLE)
  3. OXALIPLATIN. [Concomitant]
     Active Substance: OXALIPLATIN
     Indication: CHOLANGIOCARCINOMA
     Dosage: 60 MILLIGRAM/SQ. METER, Q2WK (28 DAY CYCLE)
  4. GEMCITABINE. [Concomitant]
     Active Substance: GEMCITABINE
     Indication: CHOLANGIOCARCINOMA
     Dosage: 1000 MILLIGRAM PER MILLILITRE, Q2WK (28 DAY CYCLE)

REACTIONS (16)
  - Hypertension [Unknown]
  - Nausea [Unknown]
  - Vomiting [Unknown]
  - Cholangiocarcinoma [Unknown]
  - Peripheral sensory neuropathy [Unknown]
  - Diarrhoea [Unknown]
  - Death [Fatal]
  - Therapy partial responder [Unknown]
  - Stomatitis [Unknown]
  - Peripheral motor neuropathy [Unknown]
  - Skin reaction [Unknown]
  - Constipation [Unknown]
  - Proteinuria [Unknown]
  - Infection [Unknown]
  - Pain [Unknown]
  - Rash [Unknown]
